FAERS Safety Report 4536369-7 (Version None)
Quarter: 2004Q4

REPORT INFORMATION
  Report Type: 
  Country: None (occurrence: None)
  Receive Date: 20041223
  Receipt Date: 20040826
  Transmission Date: 20050328
  Serious: No
  Sender: FDA-Public Use
  Company Number: US-GLAXOSMITHKLINE-A0523658A

PATIENT

DRUGS (1)
  1. FLONASE [Suspect]
     Indication: ILL-DEFINED DISORDER

REACTIONS (1)
  - ADVERSE EVENT [None]
